FAERS Safety Report 9533713 (Version 2)
Quarter: 2013Q4

REPORT INFORMATION
  Report Type: Report from Study
  Country: ZA (occurrence: ZA)
  Receive Date: 20130918
  Receipt Date: 20131113
  Transmission Date: 20140711
  Serious: Yes (Hospitalization)
  Sender: FDA-Public Use
  Company Number: ZA-BRISTOL-MYERS SQUIBB COMPANY-19382050

PATIENT
  Age: 70 Year
  Sex: Male

DRUGS (2)
  1. IPILIMUMAB [Suspect]
     Indication: MALIGNANT MELANOMA
     Route: 042
     Dates: start: 20130530, end: 20130621
  2. WARFARIN [Concomitant]
     Indication: ATRIAL FIBRILLATION

REACTIONS (2)
  - Cytomegalovirus colitis [Recovering/Resolving]
  - Rash pruritic [Unknown]
